FAERS Safety Report 6954183-X (Version None)
Quarter: 2010Q3

REPORT INFORMATION
  Report Type: 
  Country: None (occurrence: None)
  Receive Date: 20100829
  Receipt Date: 20100709
  Transmission Date: 20110219
  Serious: No
  Sender: FDA-Public Use
  Company Number: US-ABBOTT-10P-163-0656183-00

PATIENT
  Sex: Female
  Weight: 90.8 kg

DRUGS (1)
  1. NIASPAN [Suspect]
     Indication: LOW DENSITY LIPOPROTEIN INCREASED
     Dosage: 1000 MG DAILY AT BEDTIME
     Dates: start: 20100501

REACTIONS (2)
  - DYSPEPSIA [None]
  - HAEMATOCHEZIA [None]
